FAERS Safety Report 5068128-3 (Version None)
Quarter: 2006Q3

REPORT INFORMATION
  Report Type: 
  Country: None (occurrence: None)
  Receive Date: 20060731
  Receipt Date: 20060718
  Transmission Date: 20061208
  Serious: Yes (Hospitalization, Other)
  Sender: FDA-Public Use
  Company Number: USA-2005-0021467

PATIENT
  Sex: Male

DRUGS (21)
  1. OXYCONTIN [Suspect]
     Indication: DRUG USE FOR UNKNOWN INDICATION
  2. ZOLOFT [Concomitant]
  3. TOPROL-XL [Concomitant]
  4. LIPITOR [Concomitant]
  5. XANAX [Concomitant]
  6. PREVACID [Concomitant]
  7. VICODIN [Concomitant]
  8. ASPIRIN [Concomitant]
  9. CLONIDINE [Concomitant]
  10. WELLBUTRIN [Concomitant]
  11. PLAVIX [Concomitant]
  12. REMERON [Concomitant]
  13. AMBIEN [Concomitant]
  14. CYCLOBENZAPRINE HCL [Concomitant]
  15. ISOSORBIDE (ISOSORBIDE) [Concomitant]
  16. ARTHROTEC [Concomitant]
  17. SERZONE [Concomitant]
  18. K-TAB [Concomitant]
  19. LASIX [Concomitant]
  20. ZAROXOLYN [Concomitant]
  21. VITAMINS [Concomitant]

REACTIONS (56)
  - AGITATION [None]
  - ANGER [None]
  - ANGINA PECTORIS [None]
  - ANXIETY [None]
  - APATHY [None]
  - ARTHRALGIA [None]
  - BOREDOM [None]
  - CELLULITIS [None]
  - CHEST DISCOMFORT [None]
  - DECREASED APPETITE [None]
  - DECREASED INTEREST [None]
  - DELUSIONAL DISORDER, UNSPECIFIED TYPE [None]
  - DEPRESSION [None]
  - DISSOCIATIVE FUGUE [None]
  - DISTURBANCE IN ATTENTION [None]
  - DRUG DEPENDENCE [None]
  - DRUG INEFFECTIVE [None]
  - DRUG WITHDRAWAL SYNDROME [None]
  - DYSPHORIA [None]
  - DYSPNOEA [None]
  - EJECTION FRACTION DECREASED [None]
  - FEELING ABNORMAL [None]
  - HALLUCINATION, TACTILE [None]
  - HYPERLIPIDAEMIA [None]
  - INITIAL INSOMNIA [None]
  - IRRITABILITY [None]
  - LETHARGY [None]
  - LIBIDO DECREASED [None]
  - LOSS OF CONSCIOUSNESS [None]
  - MEMORY IMPAIRMENT [None]
  - MORBID THOUGHTS [None]
  - MUSCLE SPASMS [None]
  - MUSCLE TWITCHING [None]
  - MUSCULOSKELETAL CHEST PAIN [None]
  - NAUSEA [None]
  - NECK PAIN [None]
  - OBSESSIVE-COMPULSIVE DISORDER [None]
  - OEDEMA PERIPHERAL [None]
  - ORAL FUNGAL INFECTION [None]
  - PAIN [None]
  - PAIN IN EXTREMITY [None]
  - PARANOIA [None]
  - PHOTOPHOBIA [None]
  - PITTING OEDEMA [None]
  - PSYCHOMOTOR RETARDATION [None]
  - ROAD TRAFFIC ACCIDENT [None]
  - SELF ESTEEM DECREASED [None]
  - SLEEP DISORDER DUE TO A GENERAL MEDICAL CONDITION [None]
  - SOCIAL AVOIDANT BEHAVIOUR [None]
  - SPEECH DISORDER [None]
  - STARING [None]
  - SUBSTANCE ABUSE [None]
  - SYNCOPE [None]
  - TEARFULNESS [None]
  - TONGUE COATED [None]
  - TREMOR [None]
